FAERS Safety Report 5953262-3 (Version None)
Quarter: 2008Q4

REPORT INFORMATION
  Report Type: 
  Country: None (occurrence: None)
  Receive Date: 20081114
  Receipt Date: 20081106
  Transmission Date: 20090506
  Serious: Yes (Other)
  Sender: FDA-Public Use
  Company Number: US-ROCHE-595766

PATIENT
  Age: 58 Year
  Sex: Female

DRUGS (4)
  1. BONIVA [Suspect]
     Indication: DRUG USE FOR UNKNOWN INDICATION
     Route: 065
     Dates: start: 20060101
  2. IMITREX [Concomitant]
  3. LOTEMAX [Concomitant]
  4. TRAVATAN [Concomitant]

REACTIONS (1)
  - CALCINOSIS [None]
